FAERS Safety Report 5468078-4 (Version None)
Quarter: 2007Q3

REPORT INFORMATION
  Report Type: 
  Country: None (occurrence: None)
  Receive Date: 20070926
  Receipt Date: 20070918
  Transmission Date: 20080115
  Serious: Yes (Other)
  Sender: FDA-Public Use
  Company Number: GB-AVENTIS-200718640GDDC

PATIENT
  Sex: Female

DRUGS (2)
  1. METRONIDAZOLE [Suspect]
     Indication: DENTAL TREATMENT
     Route: 048
     Dates: start: 20070825, end: 20070830
  2. ZANTAC [Concomitant]
     Dosage: DOSE: UNK

REACTIONS (3)
  - ASTHENIA [None]
  - PAIN IN EXTREMITY [None]
  - TONGUE BLACK HAIRY [None]
